FAERS Safety Report 12867316 (Version 2)
Quarter: 2017Q1

REPORT INFORMATION
  Report Type: Spontaneous
  Country: US (occurrence: US)
  Receive Date: 20161020
  Receipt Date: 20170213
  Transmission Date: 20170428
  Serious: Yes (Other)
  Sender: FDA-Public Use
  Company Number: US-TEVA-706069ACC

PATIENT
  Age: 31 Year
  Sex: Female
  Weight: 58.57 kg

DRUGS (4)
  1. TERAZOL [Concomitant]
     Active Substance: TERCONAZOLE
  2. PARAGARD T 380A [Suspect]
     Active Substance: COPPER
     Indication: CONTRACEPTION
     Dates: start: 20160610, end: 20160616
  3. HYDROCORTISONE. [Concomitant]
     Active Substance: HYDROCORTISONE
  4. JUNEL [Concomitant]
     Active Substance: ETHINYL ESTRADIOL\NORETHINDRONE ACETATE

REACTIONS (1)
  - Device dislocation [Recovered/Resolved]

NARRATIVE: CASE EVENT DATE: 20160616
